FAERS Safety Report 10576929 (Version 1)
Quarter: 2014Q4

REPORT INFORMATION
  Report Type: Spontaneous
  Country: US (occurrence: US)
  Receive Date: 20141111
  Receipt Date: 20141111
  Transmission Date: 20150529
  Serious: Yes (Hospitalization)
  Sender: FDA-Public Use
  Company Number: US-PFIZER INC-2014308596

PATIENT
  Age: 77 Year
  Sex: Female
  Weight: 69.39 kg

DRUGS (1)
  1. LYRICA [Suspect]
     Active Substance: PREGABALIN
     Dosage: 75 MG, 2X/DAY

REACTIONS (3)
  - Poor quality sleep [Unknown]
  - Arthritis [Unknown]
  - Myocardial infarction [Unknown]
